FAERS Safety Report 24717297 (Version 1)
Quarter: 2024Q4

REPORT INFORMATION
  Report Type: Spontaneous
  Country: GR (occurrence: GR)
  Receive Date: 20241210
  Receipt Date: 20241210
  Transmission Date: 20250115
  Serious: Yes (Other)
  Sender: NOVARTIS
  Company Number: GR-002147023-NVSC2024GR231523

PATIENT
  Sex: Male

DRUGS (1)
  1. PLUVICTO [Suspect]
     Active Substance: LUTETIUM LU-177 VIPIVOTIDE TETRAXETAN
     Indication: Product used for unknown indication
     Dosage: UNK (FOURTH OR FIFTH PLUVICTO DOSE)
     Route: 065

REACTIONS (3)
  - White blood cell count abnormal [Unknown]
  - Platelet count abnormal [Unknown]
  - Prostatic specific antigen increased [Unknown]
